FAERS Safety Report 14302629 (Version 1)
Quarter: 2017Q4

REPORT INFORMATION
  Report Type: Spontaneous
  Country: US (occurrence: US)
  Receive Date: 20171219
  Receipt Date: 20171219
  Transmission Date: 20180321
  Serious: No
  Sender: FDA-Public Use
  Company Number: US-PARI RESPIRATORY EQUIPMENT, INC.-2017PAR00031

PATIENT
  Sex: Male
  Weight: 54.2 kg

DRUGS (6)
  1. PULMOZYME [Suspect]
     Active Substance: DORNASE ALFA
  2. OMEPRAZOLE. [Concomitant]
     Active Substance: OMEPRAZOLE
  3. COMPLETE FORM [Concomitant]
  4. KITABIS PAK [Suspect]
     Active Substance: TOBRAMYCIN
     Indication: CYSTIC FIBROSIS
     Dosage: 300 MG, 2X/DAY
     Route: 055
     Dates: start: 20161108
  5. FLOVENT HFA [Concomitant]
     Active Substance: FLUTICASONE PROPIONATE
     Dosage: UNK
     Route: 055
  6. LORATADINE. [Concomitant]
     Active Substance: LORATADINE

REACTIONS (1)
  - Diarrhoea [Unknown]
